FAERS Safety Report 8441692 (Version 2)
Quarter: 2013Q3

REPORT INFORMATION
  Report Type: Report from Study
  Country: MX (occurrence: MX)
  Receive Date: 20120305
  Receipt Date: 20130731
  Transmission Date: 20140515
  Serious: Yes (Hospitalization)
  Sender: FDA-Public Use
  Company Number: PHHY2012MX017613

PATIENT
  Age: 4 Year
  Sex: Male

DRUGS (2)
  1. TRILEPTAL [Suspect]
     Indication: CONVULSION
     Dosage: 9 ML, DAILY
     Dates: start: 201101, end: 20120211
  2. TRILEPTAL [Suspect]
     Dosage: 10.5 ML, DAILY
     Dates: start: 20120211

REACTIONS (6)
  - Influenza [Recovered/Resolved]
  - Convulsion [Recovered/Resolved]
  - Crying [Unknown]
  - Irritability [Unknown]
  - Somnolence [Unknown]
  - Drug level decreased [Unknown]
